FAERS Safety Report 15084980 (Version 9)
Quarter: 2019Q1

REPORT INFORMATION
  Report Type: Spontaneous
  Country: US (occurrence: US)
  Receive Date: 20180628
  Receipt Date: 20190109
  Transmission Date: 20190417
  Serious: Yes (Hospitalization, Disabling, Other)
  Sender: FDA-Public Use
  Company Number: US-OTSUKA-2018_013207

PATIENT
  Age: 44 Year
  Sex: Male
  Weight: 84.81 kg

DRUGS (50)
  1. ARIPIPRAZOLE. [Concomitant]
     Active Substance: ARIPIPRAZOLE
     Indication: AFFECTIVE DISORDER
     Dosage: 1 DF, QD
     Route: 048
     Dates: start: 20111021, end: 20121021
  2. ZOLPIDEM TARTATE [Concomitant]
     Active Substance: ZOLPIDEM TARTRATE
     Indication: PRODUCT USED FOR UNKNOWN INDICATION
     Dosage: 1 DF, QD
     Route: 048
  3. MOXIFLOXACIN HCL [Concomitant]
     Active Substance: MOXIFLOXACIN
     Indication: PRODUCT USED FOR UNKNOWN INDICATION
     Dosage: 1 DF, QD
     Route: 048
  4. SILDENAFIL CITRATE. [Concomitant]
     Active Substance: SILDENAFIL CITRATE
     Indication: SEXUAL DYSFUNCTION
     Dosage: TAKE ONE HALF TABLET BY MOUTH AS NEEDED 1 HR PRIOR TO SEXUAL ACTIVITY
     Route: 048
  5. METHYLPREDNISOLONE. [Concomitant]
     Active Substance: METHYLPREDNISOLONE
     Indication: PRODUCT USED FOR UNKNOWN INDICATION
     Dosage: 1 DF, AS DIRECTED
     Route: 048
  6. CODEINE [Concomitant]
     Active Substance: CODEINE
     Indication: PRODUCT USED FOR UNKNOWN INDICATION
     Dosage: TAKE ONE TEASPOONFUL FOUR TIMES A DAY AS NEEDED
     Route: 048
  7. ABILIFY [Suspect]
     Active Substance: ARIPIPRAZOLE
     Indication: AFFECTIVE DISORDER
     Dosage: 15 MG, BID
     Route: 048
     Dates: start: 20051221
  8. ABILIFY [Suspect]
     Active Substance: ARIPIPRAZOLE
     Dosage: 20 MG, UNK
     Route: 065
  9. LIDOCAINE. [Concomitant]
     Active Substance: LIDOCAINE
     Indication: PAIN
     Dosage: APPLY MODERATE AMOUNT TOPICALLY EVERY DAY
     Route: 061
  10. MORPHINE SULFATE. [Concomitant]
     Active Substance: MORPHINE SULFATE
     Indication: PAIN
     Dosage: 1 DF, EVERY 8 HOURS
     Route: 048
  11. VARDENAFIL HCL [Concomitant]
     Indication: SEXUAL DYSFUNCTION
     Dosage: TAKE ONE HALF AS NEEDED 1 HR PRIOR TO SEXUAL ACTIVITY
     Route: 048
  12. ACETAMINOPHEN. [Concomitant]
     Active Substance: ACETAMINOPHEN
     Indication: PRODUCT USED FOR UNKNOWN INDICATION
     Dosage: 1 DF, QD
     Route: 048
  13. BACITRACIN. [Concomitant]
     Active Substance: BACITRACIN
     Indication: PRODUCT USED FOR UNKNOWN INDICATION
     Dosage: APPLY THIN FILM TOPICALLY DAILY
     Route: 061
  14. CLONAZEPAM. [Concomitant]
     Active Substance: CLONAZEPAM
     Indication: PRODUCT USED FOR UNKNOWN INDICATION
     Dosage: 1 DF, TID AS NEEDED
     Route: 048
  15. ATROPINE. [Concomitant]
     Active Substance: ATROPINE
     Indication: DIARRHOEA
     Dosage: 1 DF, TID AS NEEDED
     Route: 048
  16. KETOROLAC TROMETHAMINE. [Concomitant]
     Active Substance: KETOROLAC TROMETHAMINE
     Indication: PRODUCT USED FOR UNKNOWN INDICATION
     Dosage: 60 MG/2 ML, UNK
     Route: 030
     Dates: start: 20001026, end: 20100112
  17. NICOTINE. [Concomitant]
     Active Substance: NICOTINE
     Indication: SMOKING CESSATION THERAPY
     Dosage: CHIEW 2 PIECES FIVE TIMES A DAY AS NEEDED
     Route: 048
  18. MENTHOL W/PHENYL SALICYLATE [Concomitant]
     Indication: BACK DISORDER
     Dosage: 10-15% APPLY MODERATE AMOUNT EVERY DAY AS NEEDED
     Route: 061
  19. GABAPENTIN. [Concomitant]
     Active Substance: GABAPENTIN
     Indication: PRODUCT USED FOR UNKNOWN INDICATION
     Dosage: TAKE ONE HALF TABLET TWICE A DAYUNK
     Route: 048
  20. QUETIAPINE FUMARATE. [Concomitant]
     Active Substance: QUETIAPINE FUMARATE
     Indication: PRODUCT USED FOR UNKNOWN INDICATION
     Dosage: 1 DF, TID AS NEEDED
     Route: 048
  21. DIVALPROEX [Concomitant]
     Active Substance: DIVALPROEX SODIUM
     Indication: PRODUCT USED FOR UNKNOWN INDICATION
     Dosage: 3 DF, QD
     Route: 048
  22. METHOCARBAMOL. [Concomitant]
     Active Substance: METHOCARBAMOL
     Indication: PRODUCT USED FOR UNKNOWN INDICATION
     Dosage: 1 DF, TID AS NEEDED
     Route: 048
  23. HYDROCODONE BITARTRATE AND ACETAMINOPHEN [Concomitant]
     Active Substance: ACETAMINOPHEN\HYDROCODONE BITARTRATE
     Indication: PRODUCT USED FOR UNKNOWN INDICATION
     Dosage: 1 DF, QD
     Route: 048
  24. ABILIFY [Suspect]
     Active Substance: ARIPIPRAZOLE
     Indication: BIPOLAR DISORDER
     Dosage: 15 MG, QD (EVERY MORNING)
     Route: 048
     Dates: start: 20021115
  25. ABILIFY [Suspect]
     Active Substance: ARIPIPRAZOLE
     Dosage: 30 MG, QD
     Route: 065
     Dates: end: 20140201
  26. IBUPROFEN. [Concomitant]
     Active Substance: IBUPROFEN
     Indication: INFLAMMATION
  27. CYCLOBENZAPRINE HCL [Concomitant]
     Active Substance: CYCLOBENZAPRINE HYDROCHLORIDE
     Indication: MUSCLE RELAXANT THERAPY
     Dosage: 1 DF, TID  (AS NEEDED)
     Route: 048
     Dates: start: 19980427
  28. FORMOTEROL FUMARATE [Concomitant]
     Active Substance: FORMOTEROL FUMARATE
     Indication: DYSPNOEA
     Dosage: ONE CAPSULE TWICE IN A DAY
     Route: 055
  29. DOXYCYCLINE HYCLATE. [Concomitant]
     Active Substance: DOXYCYCLINE HYCLATE
     Indication: PRODUCT USED FOR UNKNOWN INDICATION
     Dosage: 1 DF, QD
     Route: 048
  30. ABILIFY [Suspect]
     Active Substance: ARIPIPRAZOLE
     Indication: BIPOLAR I DISORDER
     Dosage: UNK, BID (HALF TABLET OF 30MG TWICE A DAY)
     Route: 048
  31. IBUPROFEN. [Concomitant]
     Active Substance: IBUPROFEN
     Indication: BACK PAIN
  32. CYCLOBENZAPRINE HCL [Concomitant]
     Active Substance: CYCLOBENZAPRINE HYDROCHLORIDE
     Indication: MUSCLE SPASMS
     Dosage: 1 DF, QD (AS NEEDED, BEDTIME)
     Route: 048
     Dates: start: 20070427
  33. AZITHROMYCIN ANHYDROUS. [Concomitant]
     Active Substance: AZITHROMYCIN ANHYDROUS
     Dosage: TAKE ONE TABLET DAILY FOR 4 DAYS
     Route: 048
  34. BUPROPION HCL [Concomitant]
     Active Substance: BUPROPION HYDROCHLORIDE
     Indication: PRODUCT USED FOR UNKNOWN INDICATION
     Dosage: 1 DF, QD
     Route: 048
  35. MOMETASONE FUROATE. [Concomitant]
     Active Substance: MOMETASONE FUROATE
     Indication: PRODUCT USED FOR UNKNOWN INDICATION
     Dosage: 2 DF, QD
     Route: 055
  36. PREDNISONE. [Concomitant]
     Active Substance: PREDNISONE
     Indication: PRODUCT USED FOR UNKNOWN INDICATION
     Dosage: 1 DF, TID
     Route: 048
  37. DEPAKOTE [Suspect]
     Active Substance: DIVALPROEX SODIUM
     Indication: BIPOLAR DISORDER
     Dosage: 2 DF, QD (BEDTIME)
     Route: 048
  38. TRAMADOL HCL [Concomitant]
     Active Substance: TRAMADOL HYDROCHLORIDE
     Indication: PRODUCT USED FOR UNKNOWN INDICATION
     Dosage: 2 DF, THREE TIMES OR FOUR TIMES A DAY (AS NEEDED)
     Route: 048
     Dates: start: 20001026, end: 20100818
  39. CYCLOBENZAPRINE HCL [Concomitant]
     Active Substance: CYCLOBENZAPRINE HYDROCHLORIDE
     Indication: PAIN
     Dosage: 1 DF, BID
     Route: 048
     Dates: start: 20040212
  40. FLUNISOLIDE. [Concomitant]
     Active Substance: FLUNISOLIDE
     Indication: PRODUCT USED FOR UNKNOWN INDICATION
     Dosage: 1 SPRAY IN EACH TWICE A DAY NOSTRIL
     Route: 045
  41. AMLODIPINE BESYLATE. [Concomitant]
     Active Substance: AMLODIPINE BESYLATE
     Indication: BLOOD PRESSURE MEASUREMENT
     Dosage: 1 DF, QD
     Route: 048
  42. OXYCODONE HYDROCHLORIDE. [Concomitant]
     Active Substance: OXYCODONE HYDROCHLORIDE
     Indication: PAIN
     Dosage: 1 DF, QD
     Route: 048
  43. BACLOFEN. [Concomitant]
     Active Substance: BACLOFEN
     Indication: MUSCLE RIGIDITY
     Dosage: 1 DF, QD
     Route: 048
  44. LAMOTRIGINE. [Concomitant]
     Active Substance: LAMOTRIGINE
     Indication: PRODUCT USED FOR UNKNOWN INDICATION
     Dosage: 1 DF, QD AT BEDTIME
     Route: 048
  45. IBUPROFEN. [Concomitant]
     Active Substance: IBUPROFEN
     Indication: PAIN
     Dosage: 1 DF, TID (AS NEEDED) (800 OR 600 OR 400 MG)
     Route: 048
     Dates: start: 19980225
  46. CYCLOBENZAPRINE HCL [Concomitant]
     Active Substance: CYCLOBENZAPRINE HYDROCHLORIDE
     Dosage: 1 DF, TID  (AS NEEDED)
     Route: 048
     Dates: start: 20090629, end: 20100630
  47. ALBUTEROL. [Concomitant]
     Active Substance: ALBUTEROL
     Indication: DYSPNOEA
     Dosage: INHALES 2 PUFFS FOUR TIMEAS A DAY AS NEEDED
     Route: 045
  48. AZITHROMYCIN ANHYDROUS. [Concomitant]
     Active Substance: AZITHROMYCIN ANHYDROUS
     Indication: PRODUCT USED FOR UNKNOWN INDICATION
     Dosage: TAKE 2 TABLETS DAILY FOR 1 DAY
     Route: 048
  49. BUSPIRONE HCL [Concomitant]
     Active Substance: BUSPIRONE HYDROCHLORIDE
     Indication: ANXIETY
     Dosage: 1 DF, TID
     Route: 048
  50. AMOXICILLIN. [Concomitant]
     Active Substance: AMOXICILLIN
     Indication: PRODUCT USED FOR UNKNOWN INDICATION
     Dosage: 1 DF, TID
     Route: 048

REACTIONS (61)
  - Spinal pain [Recovered/Resolved]
  - Mean platelet volume increased [Unknown]
  - Blood creatinine decreased [Unknown]
  - Blood cholesterol increased [Unknown]
  - Monocyte count increased [Unknown]
  - Back pain [Not Recovered/Not Resolved]
  - Pain in extremity [Unknown]
  - Irritability [Recovering/Resolving]
  - Blood glucose increased [Unknown]
  - Anxiety [Unknown]
  - Condition aggravated [Unknown]
  - Cholelithiasis [Unknown]
  - Neutrophil count increased [Unknown]
  - Hypoaesthesia [Unknown]
  - Sedation [Unknown]
  - Carbon dioxide increased [Unknown]
  - Haemoglobin decreased [Unknown]
  - Peripheral swelling [Unknown]
  - Bronchitis [Unknown]
  - Chest pain [Recovered/Resolved]
  - Obsessive-compulsive disorder [Unknown]
  - Weight increased [Unknown]
  - Blood urine present [Unknown]
  - Sexual dysfunction [Recovered/Resolved]
  - Emotional distress [Recovering/Resolving]
  - Low density lipoprotein increased [Unknown]
  - Hypotension [Unknown]
  - Alanine aminotransferase increased [Unknown]
  - Myalgia [Unknown]
  - Impulsive behaviour [Unknown]
  - Injury [Unknown]
  - Urine potassium decreased [Unknown]
  - Neuropsychiatric symptoms [Unknown]
  - Paraesthesia [Unknown]
  - Compulsive shopping [Recovered/Resolved]
  - Disability [Unknown]
  - Intervertebral disc operation [Unknown]
  - Specific gravity urine increased [Unknown]
  - Rhinitis [Unknown]
  - Arthritis [Unknown]
  - Blood triglycerides increased [Unknown]
  - Constipation [Unknown]
  - Impulse-control disorder [Unknown]
  - Divorced [Unknown]
  - Product use in unapproved indication [Unknown]
  - Spinal osteoarthritis [Unknown]
  - Alcohol use [Unknown]
  - Aspartate aminotransferase increased [Unknown]
  - Pain [Recovering/Resolving]
  - Inappropriate schedule of product administration [Unknown]
  - Lipase decreased [Unknown]
  - Mean cell haemoglobin concentration decreased [Unknown]
  - Anhedonia [Unknown]
  - Pneumonia [Unknown]
  - White blood cell count increased [Unknown]
  - Amnesia [Unknown]
  - Lymphocyte count decreased [Unknown]
  - Gambling disorder [Recovered/Resolved]
  - Economic problem [Unknown]
  - Social problem [Unknown]
  - Personal relationship issue [Unknown]

NARRATIVE: CASE EVENT DATE: 2002
